FAERS Safety Report 6002139-6 (Version None)
Quarter: 2008Q4

REPORT INFORMATION
  Report Type: 
  Country: None (occurrence: None)
  Receive Date: 20081215
  Receipt Date: 20071116
  Transmission Date: 20090506
  Serious: No
  Sender: FDA-Public Use
  Company Number: US-AMGEN-KDL251954

PATIENT
  Sex: Female
  Weight: 83.5 kg

DRUGS (5)
  1. ENBREL [Suspect]
     Indication: RHEUMATOID ARTHRITIS
     Route: 058
     Dates: start: 20071025
  2. METHOTREXATE [Concomitant]
     Dates: start: 20070801
  3. PREDNISONE TAB [Concomitant]
  4. METROGEL [Concomitant]
  5. LIDODERM PATCH (ENDO PHARMACEUTICALS) [Concomitant]

REACTIONS (10)
  - CONTUSION [None]
  - ERYTHEMA [None]
  - INJECTION SITE ERYTHEMA [None]
  - INJECTION SITE PRURITUS [None]
  - INJECTION SITE REACTION [None]
  - INJECTION SITE SWELLING [None]
  - INJECTION SITE URTICARIA [None]
  - MALAISE [None]
  - PRURITUS [None]
  - PYELONEPHRITIS [None]
